FAERS Safety Report 5153652-5 (Version None)
Quarter: 2006Q4

REPORT INFORMATION
  Report Type: 
  Country: None (occurrence: None)
  Receive Date: 20061114
  Receipt Date: 20061102
  Transmission Date: 20070319
  Serious: Yes (Death, Life-Threatening, Hospitalization, Other)
  Sender: FDA-Public Use
  Company Number: 2006108499

PATIENT
  Age: 57 Year
  Sex: Male
  Weight: 51 kg

DRUGS (12)
  1. VFEND [Suspect]
     Indication: BRONCHOPULMONARY ASPERGILLOSIS
     Dosage: 400 MG (200 MG, FREQUENCY:  BID), INTRAVENOUS
     Route: 042
     Dates: start: 20060810, end: 20060905
  2. AMINOPHYLLINE [Suspect]
     Dosage: INTRAVENOUS
     Route: 042
     Dates: start: 20060904
  3. MODACIN (CEFTAZIDIME) (CEFTAZIDIME) [Concomitant]
  4. FIRSTCIN (CEFOZOPRAN HYDROCHLORIDE) (CEFOZOPRAN HYDROCHLORIDE) [Concomitant]
  5. CARBENIN (PANIPENEM/BETAMIPRON) (BETAMIPRON, PANIPENEM) [Concomitant]
  6. SAXIZON (HYDROCORTISONE SODIUM SUCCINATE) (HYDROCORTISONE SODIUM SUCCI [Concomitant]
  7. OMEPRAL (OMEPRAZOLE) (OMEPRAZOLE) [Concomitant]
  8. MUCOSTA (REBAMIPIDE (REBAMIPIDE) [Concomitant]
  9. LASIX [Concomitant]
  10. FUNGIZONE (AMPHOTERICIN B) (AMPHOTERICIN B) [Concomitant]
  11. NEUTROGEN (LENOGRASTIM, GENETICAL RECOMBINATION) (LENOGRASTIM) [Concomitant]
  12. HOKUNALIN (TULOBUTEROL HYDROCHLORIDE) [Concomitant]

REACTIONS (15)
  - BLOOD PRESSURE IMMEASURABLE [None]
  - BRONCHOPULMONARY ASPERGILLOSIS [None]
  - CARDIAC ARREST [None]
  - CONDITION AGGRAVATED [None]
  - DRUG INEFFECTIVE [None]
  - HODGKIN'S DISEASE [None]
  - HYPOGLYCAEMIA [None]
  - LOSS OF CONSCIOUSNESS [None]
  - LYMPHADENITIS [None]
  - PALPITATIONS [None]
  - PLEURAL EFFUSION [None]
  - RESPIRATORY ARREST [None]
  - SEPSIS [None]
  - THIRST [None]
  - WHITE BLOOD CELL COUNT DECREASED [None]
